FAERS Safety Report 7710724-6 (Version None)
Quarter: 2011Q3

REPORT INFORMATION
  Report Type: 
  Country: None (occurrence: None)
  Receive Date: 20110825
  Receipt Date: 20110812
  Transmission Date: 20111222
  Serious: Yes (Hospitalization)
  Sender: FDA-Public Use
  Company Number: CA-BAYER-2011-054087

PATIENT
  Age: 82 Year
  Sex: Male
  Weight: 78 kg

DRUGS (17)
  1. XARELTO [Suspect]
     Dosage: UNK
  2. VITAMIN B-12 [Concomitant]
     Dosage: 100 MG, QD
     Route: 065
  3. VITAMIN D [Concomitant]
     Dosage: 100 U, QD
     Route: 048
  4. TRAZODONE HYDROCHLORIDE [Concomitant]
     Dosage: 25 MG, HS
     Route: 065
  5. CELEBREX [Interacting]
     Dosage: UNK
  6. METFORMIN HCL [Concomitant]
     Dosage: 500 MG, TID
     Route: 065
  7. PAROXETINE HCL [Concomitant]
     Dosage: 30 MG, QD
     Route: 065
  8. XARELTO [Suspect]
     Indication: THROMBOSIS PROPHYLAXIS
     Dosage: 10 MG, QD
     Route: 048
     Dates: start: 20110302, end: 20110310
  9. ACETYLSALICYLIC ACID SRT [Interacting]
     Indication: CORONARY ARTERY DISEASE
     Dosage: 81 MG, QD
     Route: 048
     Dates: start: 20110302, end: 20110310
  10. AMLODIPINE [Concomitant]
     Dosage: 25 MG, QD
     Route: 065
  11. PRAVASTATIN SODIUM [Concomitant]
     Dosage: 20 MG, QD
     Route: 048
  12. ACETYLSALICYLIC ACID SRT [Interacting]
     Dosage: UNK
     Route: 048
  13. ARICEPT [Concomitant]
     Dosage: 10 MG, QD
     Route: 065
  14. CELEBREX [Interacting]
     Dosage: 200 MG, BID
     Route: 048
  15. METOPROLOL [Concomitant]
     Dosage: 12.5 MG, BID
     Route: 065
  16. CEFAZOLIN [Concomitant]
     Dosage: Q9H, TOTAL 3 DOSES
     Route: 042
  17. HYDROMORPHONE HCL [Concomitant]
     Dosage: 1 MG, PRN
     Route: 065

REACTIONS (2)
  - GASTRITIS [None]
  - DUODENAL ULCER [None]
